FAERS Safety Report 18468981 (Version 1)
Quarter: 2020Q4

REPORT INFORMATION
  Report Type: Spontaneous
  Country: US (occurrence: US)
  Receive Date: 20201105
  Receipt Date: 20201105
  Transmission Date: 20210114
  Serious: Yes (Hospitalization, Other)
  Sender: FDA-Public Use
  Company Number: None

PATIENT
  Age: 82 Year
  Sex: Male
  Weight: 87 kg

DRUGS (1)
  1. VENOFER [Suspect]
     Active Substance: IRON SUCROSE
     Indication: ANAEMIA
     Dosage: OTHER FREQUENCY:WEEKLY X 4 DOSES;?
     Route: 041
     Dates: start: 20201029, end: 20201029

REACTIONS (2)
  - Acute myocardial infarction [None]
  - Productive cough [None]

NARRATIVE: CASE EVENT DATE: 20201029
